FAERS Safety Report 9515273 (Version 2)
Quarter: 2013Q4

REPORT INFORMATION
  Report Type: Spontaneous
  Country: US (occurrence: US)
  Receive Date: 20130911
  Receipt Date: 20131029
  Transmission Date: 20140711
  Serious: Yes (Other)
  Sender: FDA-Public Use
  Company Number: US-TEVA-431319USA

PATIENT
  Age: 31 Year
  Sex: Female
  Weight: 70.37 kg

DRUGS (7)
  1. PARAGARD 380A [Suspect]
     Indication: CONTRACEPTION
     Route: 015
     Dates: start: 20130828, end: 20130906
  2. VITAMIN B COMPLEX [Concomitant]
     Indication: MEDICAL DIET
  3. VITAMIN D [Concomitant]
     Indication: MEDICAL DIET
  4. TUNA OMEGA 3 [Concomitant]
     Indication: MEDICAL DIET
  5. CALCIUM [Concomitant]
     Indication: MEDICAL DIET
  6. VITAMIN B6 [Concomitant]
  7. VITAMIN B12 [Concomitant]

REACTIONS (5)
  - Uterine haemorrhage [Recovered/Resolved]
  - Mood swings [Recovered/Resolved]
  - Lactation disorder [Not Recovered/Not Resolved]
  - Exposure during breast feeding [Unknown]
  - Emotional disorder [Recovered/Resolved]
